FAERS Safety Report 5378590-4 (Version None)
Quarter: 2007Q3

REPORT INFORMATION
  Report Type: 
  Country: None (occurrence: None)
  Receive Date: 20070702
  Receipt Date: 20070702
  Transmission Date: 20080115
  Serious: No
  Sender: FDA-Public Use
  Company Number: None

PATIENT
  Sex: Female
  Weight: 67.1324 kg

DRUGS (1)
  1. REACH ACT RESTORING 0.05% SODIUM FLUORIDE JOHNSON+JOHNSON [Suspect]
     Indication: DENTAL CARE
     Dosage: 10 ML ONCE DAILY PO
     Route: 048
     Dates: start: 20070624, end: 20070627

REACTIONS (3)
  - AGEUSIA [None]
  - ORAL DISCOMFORT [None]
  - SCAB [None]
